FAERS Safety Report 21721226 (Version 3)
Quarter: 2025Q1

REPORT INFORMATION
  Report Type: Spontaneous
  Country: FR (occurrence: FR)
  Receive Date: 20221213
  Receipt Date: 20250210
  Transmission Date: 20250409
  Serious: Yes (Hospitalization, Other)
  Sender: MYLAN
  Company Number: FR-ROCHE-3194084

PATIENT
  Age: 50 Year
  Sex: Female

DRUGS (8)
  1. PREDNISOLONE [Suspect]
     Active Substance: PREDNISOLONE
     Indication: Immunosuppressant drug therapy
     Route: 065
     Dates: start: 2014
  2. MYCOPHENOLATE MOFETIL [Suspect]
     Active Substance: MYCOPHENOLATE MOFETIL
     Indication: Immunosuppressant drug therapy
     Route: 065
     Dates: start: 2014, end: 201412
  3. TACROLIMUS [Suspect]
     Active Substance: TACROLIMUS
     Indication: Immunosuppressant drug therapy
     Route: 065
     Dates: start: 2014
  4. RITUXIMAB [Suspect]
     Active Substance: RITUXIMAB
     Indication: Immunosuppressant drug therapy
     Route: 065
     Dates: start: 2014, end: 2014
  5. RITUXIMAB [Suspect]
     Active Substance: RITUXIMAB
     Route: 065
     Dates: start: 201409
  6. THYMOGLOBULIN [Suspect]
     Active Substance: LAPINE T-LYMPHOCYTE IMMUNE GLOBULIN
     Indication: Immunosuppressant drug therapy
     Route: 065
     Dates: start: 2014, end: 2014
  7. THYMOGLOBULIN [Suspect]
     Active Substance: LAPINE T-LYMPHOCYTE IMMUNE GLOBULIN
     Route: 065
     Dates: start: 201409
  8. AZATHIOPRINE [Concomitant]
     Active Substance: AZATHIOPRINE
     Indication: Immunosuppressant drug therapy
     Route: 065
     Dates: start: 201412

REACTIONS (10)
  - Arthritis reactive [Recovered/Resolved]
  - Splenic abscess [Recovered/Resolved]
  - Hepatic infection bacterial [Recovered/Resolved]
  - Campylobacter bacteraemia [Recovered/Resolved]
  - Erythema nodosum [Recovered/Resolved]
  - Enterocolitis [Recovered/Resolved]
  - Hepatitis [Recovered/Resolved]
  - Campylobacter infection [Recovered/Resolved]
  - Ascites [Recovered/Resolved]
  - Viral diarrhoea [Unknown]

NARRATIVE: CASE EVENT DATE: 20140101
